FAERS Safety Report 10056878 (Version 3)
Quarter: 2014Q2

REPORT INFORMATION
  Report Type: Report from Study
  Country: IT (occurrence: IT)
  Receive Date: 20140403
  Receipt Date: 20140629
  Transmission Date: 20141212
  Serious: Yes (Death, Hospitalization, Other)
  Sender: FDA-Public Use
  Company Number: IT-BRISTOL-MYERS SQUIBB COMPANY-20567160

PATIENT
  Age: 83 Year
  Sex: Male

DRUGS (4)
  1. APIXABAN [Suspect]
     Indication: THROMBOSIS PROPHYLAXIS
     Dosage: INTRPTD ON 25JUL13
     Route: 048
     Dates: start: 20110922, end: 20130725
  2. LASIX [Concomitant]
  3. INDERAL [Concomitant]
  4. PORTOLAC [Concomitant]

REACTIONS (4)
  - Death [Fatal]
  - Rectal haemorrhage [Recovered/Resolved]
  - Anaemia [Recovering/Resolving]
  - Renal failure acute [Recovered/Resolved]
